FAERS Safety Report 25642204 (Version 2)
Quarter: 2025Q3

REPORT INFORMATION
  Report Type: Report from Study
  Country: US (occurrence: US)
  Receive Date: 20250805
  Receipt Date: 20250812
  Transmission Date: 20251021
  Serious: Yes (Hospitalization, Other)
  Sender: ABBVIE
  Company Number: US-ABBVIE-6394918

PATIENT
  Age: 52 Year
  Sex: Male
  Weight: 77.11 kg

DRUGS (2)
  1. DUOPA [Suspect]
     Active Substance: CARBIDOPA\LEVODOPA
     Indication: Parkinson^s disease
     Route: 050
     Dates: start: 202406
  2. DUOPA [Suspect]
     Active Substance: CARBIDOPA\LEVODOPA
     Route: 050

REACTIONS (6)
  - Bladder cancer [Not Recovered/Not Resolved]
  - Abdominal pain [Recovered/Resolved]
  - Thrombosis [Recovered/Resolved]
  - Nerve compression [Recovered/Resolved]
  - Abdominal rigidity [Recovered/Resolved]
  - Blood urine present [Recovered/Resolved]

NARRATIVE: CASE EVENT DATE: 20250201
